FAERS Safety Report 15655304 (Version 1)
Quarter: 2018Q4

REPORT INFORMATION
  Report Type: Spontaneous
  Country: RU (occurrence: RU)
  Receive Date: 20181126
  Receipt Date: 20181126
  Transmission Date: 20190205
  Serious: Yes (Other)
  Sender: FDA-Public Use
  Company Number: RU-009507513-1811RUS008675

PATIENT
  Age: 26 Year
  Sex: Female

DRUGS (1)
  1. DIPROSPAN [Suspect]
     Active Substance: BETAMETHASONE DIPROPIONATE\BETAMETHASONE SODIUM PHOSPHATE
     Dosage: PROJECTION OF THE UPPER PATELLAR INVERSION, TRIGGER-PERIARTICULAR.

REACTIONS (1)
  - Scleroderma [Unknown]
